FAERS Safety Report 23875570 (Version 1)
Quarter: 2024Q2

REPORT INFORMATION
  Report Type: Spontaneous
  Country: US (occurrence: US)
  Receive Date: 20240520
  Receipt Date: 20240520
  Transmission Date: 20240716
  Serious: Yes (Other)
  Sender: FDA-Public Use
  Company Number: US-ALKERMES INC.-ALK-2024-001276

PATIENT
  Age: 29 Year
  Sex: Male

DRUGS (2)
  1. LYBALVI [Suspect]
     Active Substance: OLANZAPINE\SAMIDORPHAN L-MALATE
     Indication: Schizophrenia
     Dosage: 10/10 MILLIGRAM, QD
     Route: 048
     Dates: start: 2024, end: 2024
  2. COCAINE [Suspect]
     Active Substance: COCAINE
     Indication: Product used for unknown indication
     Dosage: UNK
     Route: 065
     Dates: start: 2024

REACTIONS (2)
  - Drug abuse [Unknown]
  - Restlessness [Unknown]

NARRATIVE: CASE EVENT DATE: 20240101
